FAERS Safety Report 11246705 (Version 1)
Quarter: 2015Q3

REPORT INFORMATION
  Report Type: Report from Study
  Country: DE (occurrence: DE)
  Receive Date: 20150708
  Receipt Date: 20150708
  Transmission Date: 20151125
  Serious: Yes (Hospitalization, Other)
  Sender: FDA-Public Use
  Company Number: DE-ROCHE-717612

PATIENT
  Age: 72 Year
  Sex: Male
  Weight: 76 kg

DRUGS (6)
  1. DOXORUBICIN [Suspect]
     Active Substance: DOXORUBICIN
     Indication: DIFFUSE LARGE B-CELL LYMPHOMA
     Dosage: FORM: INFUSION; ON DAY 1 AND 15, LAST DOSE PRIOR TO SAE: 11 MAY 2010, FREQUENCY: 1
     Route: 042
  2. PREDNISONE. [Suspect]
     Active Substance: PREDNISONE
     Indication: DIFFUSE LARGE B-CELL LYMPHOMA
     Dosage: FREQUENCY: 5X; LAST DOSE PRIOR TO SAE: 15 MAY 2010
     Route: 048
  3. BEVACIZUMAB [Suspect]
     Active Substance: BEVACIZUMAB
     Indication: DIFFUSE LARGE B-CELL LYMPHOMA
     Dosage: FORM: INFUSION; LAST DOSE PRIOR TO SAE: 11 MAY 2010; FREQUENCY: 1
     Route: 042
  4. RITUXIMAB [Suspect]
     Active Substance: RITUXIMAB
     Indication: DIFFUSE LARGE B-CELL LYMPHOMA
     Dosage: FORM: INFUSION; LAST DOSE PRIOR TO SAE:11 MAY 2010, FREQUENCY: 1.
     Route: 042
  5. CYCLOPHOSPHAMIDE. [Suspect]
     Active Substance: CYCLOPHOSPHAMIDE
     Indication: DIFFUSE LARGE B-CELL LYMPHOMA
     Dosage: FORM: INFUSION; FREQUENCY: 1, LAST DOSE PRIOR TO SAE: 11 MAY 2010
     Route: 042
  6. VINCRISTINE [Suspect]
     Active Substance: VINCRISTINE
     Indication: DIFFUSE LARGE B-CELL LYMPHOMA
     Dosage: LAST DOSE PRIOR TO SAE: 11 MAY 2010, FREQUENCY: 1
     Route: 042

REACTIONS (2)
  - Ascites [Recovered/Resolved]
  - Leukopenia [Recovered/Resolved]

NARRATIVE: CASE EVENT DATE: 20100519
